FAERS Safety Report 18800211 (Version 2)
Quarter: 2021Q1

REPORT INFORMATION
  Report Type: Spontaneous
  Country: US (occurrence: US)
  Receive Date: 20210128
  Receipt Date: 20210203
  Transmission Date: 20210419
  Serious: Yes (Disabling)
  Sender: FDA-Public Use
  Company Number: US-ABBVIE-20K-163-3250651-00

PATIENT
  Sex: Female

DRUGS (1)
  1. LUPRON DEPOT [Suspect]
     Active Substance: LEUPROLIDE ACETATE
     Indication: ENDOMETRIOSIS
     Route: 030
     Dates: start: 2006

REACTIONS (7)
  - Skeletal injury [Not Recovered/Not Resolved]
  - Unevaluable event [Unknown]
  - Joint injury [Not Recovered/Not Resolved]
  - Pain [Not Recovered/Not Resolved]
  - Nerve injury [Not Recovered/Not Resolved]
  - Off label use [Unknown]
  - Loss of personal independence in daily activities [Unknown]
